FAERS Safety Report 25656348 (Version 3)
Quarter: 2025Q3

REPORT INFORMATION
  Report Type: Spontaneous
  Country: JO (occurrence: JO)
  Receive Date: 20250807
  Receipt Date: 20250822
  Transmission Date: 20251020
  Serious: Yes (Life-Threatening, Other)
  Sender: NOVARTIS
  Company Number: JO-002147023-NVSC2025JO125094

PATIENT
  Age: 51 Year
  Sex: Female

DRUGS (1)
  1. ELTROMBOPAG OLAMINE [Suspect]
     Active Substance: ELTROMBOPAG OLAMINE
     Indication: Immune thrombocytopenia
     Route: 048
     Dates: start: 202207, end: 20250715

REACTIONS (13)
  - Cerebrovascular accident [Not Recovered/Not Resolved]
  - Deep vein thrombosis [Not Recovered/Not Resolved]
  - Pulmonary embolism [Not Recovered/Not Resolved]
  - Carotid artery occlusion [Not Recovered/Not Resolved]
  - Upper gastrointestinal haemorrhage [Unknown]
  - Anaemia [Unknown]
  - Cyanosis [Unknown]
  - Peripheral ischaemia [Unknown]
  - Gangrene [Unknown]
  - Cerebral ischaemia [Unknown]
  - Dysarthria [Unknown]
  - Disorientation [Unknown]
  - Cerebral artery embolism [Unknown]

NARRATIVE: CASE EVENT DATE: 20250715
